FAERS Safety Report 15871305 (Version 1)
Quarter: 2019Q1

REPORT INFORMATION
  Report Type: Spontaneous
  Country: US (occurrence: US)
  Receive Date: 20190126
  Receipt Date: 20190126
  Transmission Date: 20190417
  Serious: No
  Sender: FDA-Public Use
  Company Number: US-TAKEDA-2019TUS002504

PATIENT
  Age: 78 Year
  Sex: Female

DRUGS (1)
  1. TRINTELLIX [Suspect]
     Active Substance: VORTIOXETINE HYDROBROMIDE
     Indication: DEPRESSION
     Dosage: 5 MILLIGRAM, QD
     Route: 048
     Dates: start: 201901

REACTIONS (6)
  - Vitreous floaters [Not Recovered/Not Resolved]
  - Haematochezia [Not Recovered/Not Resolved]
  - Flatulence [Not Recovered/Not Resolved]
  - Eructation [Not Recovered/Not Resolved]
  - Stool analysis abnormal [Not Recovered/Not Resolved]
  - Abdominal pain [Not Recovered/Not Resolved]
